FAERS Safety Report 8355516 (Version 4)
Quarter: 2013Q4

REPORT INFORMATION
  Report Type: Spontaneous
  Country: US (occurrence: US)
  Receive Date: 20120126
  Receipt Date: 20131017
  Transmission Date: 20140711
  Serious: Yes (Other)
  Sender: FDA-Public Use
  Company Number: US-PFIZER INC-2012015756

PATIENT
  Sex: Female
  Weight: 58 kg

DRUGS (4)
  1. XALATAN [Suspect]
     Indication: GLAUCOMA
     Dosage: ONE DROP IN EACH EYE, 1X/DAY
     Route: 047
     Dates: start: 1997
  2. XALATAN [Suspect]
     Dosage: 2 GTT, DAILY (ONE DROP IN EACH EYE)
     Route: 047
  3. VITAMIN B12 [Concomitant]
     Dosage: UNK, MONTHLY
  4. ASPIRIN [Concomitant]
     Dosage: UNK

REACTIONS (5)
  - Macular degeneration [Unknown]
  - Visual impairment [Unknown]
  - Tooth disorder [Unknown]
  - Facial nerve disorder [Unknown]
  - Muscle disorder [Unknown]
